FAERS Safety Report 16683135 (Version 1)
Quarter: 2019Q3

REPORT INFORMATION
  Report Type: Spontaneous
  Country: US (occurrence: US)
  Receive Date: 20190807
  Receipt Date: 20190807
  Transmission Date: 20191004
  Serious: Yes (Life-Threatening)
  Sender: FDA-Public Use
  Company Number: None

PATIENT
  Age: 29 Year
  Sex: Male
  Weight: 71.55 kg

DRUGS (3)
  1. KEFLEX [Suspect]
     Active Substance: CEPHALEXIN
     Indication: HYPERSENSITIVITY
     Route: 048
     Dates: start: 20190728, end: 20190803
  2. KEFLEX [Suspect]
     Active Substance: CEPHALEXIN
     Indication: ARTHROPOD BITE
     Route: 048
     Dates: start: 20190728, end: 20190803
  3. BACTRIM [Suspect]
     Active Substance: SULFAMETHOXAZOLE\TRIMETHOPRIM

REACTIONS (2)
  - Blister [None]
  - Urticaria [None]

NARRATIVE: CASE EVENT DATE: 20190728
